FAERS Safety Report 4649352-8 (Version None)
Quarter: 2005Q2

REPORT INFORMATION
  Report Type: 
  Country: None (occurrence: None)
  Receive Date: 20050429
  Receipt Date: 20050419
  Transmission Date: 20051028
  Serious: Yes (Hospitalization, Disabling, Other)
  Sender: FDA-Public Use
  Company Number: FR-ABBOTT-05P-056-0297961-00

PATIENT
  Age: 38 Year
  Sex: Male

DRUGS (1)
  1. DEPAKENE [Suspect]
     Indication: DRUG USE FOR UNKNOWN INDICATION
     Route: 048

REACTIONS (10)
  - AZOOSPERMIA [None]
  - CALCULUS PROSTATIC [None]
  - CULTURE POSITIVE [None]
  - INFERTILITY MALE [None]
  - OBSTRUCTION [None]
  - SEMEN VOLUME DECREASED [None]
  - SEMEN VOLUME INCREASED [None]
  - SPERMATOZOA PROGRESSIVE MOTILITY DECREASED [None]
  - TERATOSPERMIA [None]
  - TESTICULAR ATROPHY [None]
